FAERS Safety Report 25489188 (Version 3)
Quarter: 2025Q3

REPORT INFORMATION
  Report Type: Spontaneous
  Country: US (occurrence: US)
  Receive Date: 20250627
  Receipt Date: 20250908
  Transmission Date: 20251020
  Serious: No
  Sender: SANOFI AVENTIS
  Company Number: US-SA-2025SA178244

PATIENT
  Age: 65 Year
  Sex: Female

DRUGS (13)
  1. DUPIXENT [Suspect]
     Active Substance: DUPILUMAB
     Indication: Heart rate irregular
     Dosage: 300 MG, QOW
     Route: 058
  2. DUPIXENT [Suspect]
     Active Substance: DUPILUMAB
     Indication: Chronic obstructive pulmonary disease
  3. ALBUTEROL SULFATE [Concomitant]
     Active Substance: ALBUTEROL SULFATE
  4. ELIQUIS [Concomitant]
     Active Substance: APIXABAN
  5. ERYTHROMYCIN [ERYTHROMYCIN PROPIONATE] [Concomitant]
  6. HYDROCODONE [Concomitant]
     Active Substance: HYDROCODONE
  7. IPRATROPIUM BROMIDE [Concomitant]
     Active Substance: IPRATROPIUM BROMIDE
  8. LIPITOR [Concomitant]
     Active Substance: ATORVASTATIN CALCIUM
  9. LORAZEPAM [Concomitant]
     Active Substance: LORAZEPAM
  10. METOPROLOL FUMARATE [Concomitant]
     Active Substance: METOPROLOL FUMARATE
  11. PANTOPRAZOLE SODIUM [Concomitant]
     Active Substance: PANTOPRAZOLE SODIUM
  12. PREDNISONE ACETATE [Concomitant]
     Active Substance: PREDNISONE ACETATE
  13. TIZANIDINE HYDROCHLORIDE [Concomitant]
     Active Substance: TIZANIDINE HYDROCHLORIDE

REACTIONS (16)
  - Malaise [Not Recovered/Not Resolved]
  - Dizziness [Not Recovered/Not Resolved]
  - Device defective [Unknown]
  - Inflammation [Not Recovered/Not Resolved]
  - Burning sensation [Not Recovered/Not Resolved]
  - Pruritus [Not Recovered/Not Resolved]
  - Injection site urticaria [Unknown]
  - Blister [Not Recovered/Not Resolved]
  - Urinary tract infection [Not Recovered/Not Resolved]
  - Headache [Not Recovered/Not Resolved]
  - Eye pruritus [Not Recovered/Not Resolved]
  - Dry eye [Not Recovered/Not Resolved]
  - Injection site pain [Unknown]
  - Product use in unapproved indication [Unknown]
  - Exposure via skin contact [Unknown]
  - Accidental exposure to product [Unknown]

NARRATIVE: CASE EVENT DATE: 20250801
